FAERS Safety Report 8132010-5 (Version None)
Quarter: 2012Q1

REPORT INFORMATION
  Report Type: 
  Country: None (occurrence: None)
  Receive Date: 20120208
  Receipt Date: 20120124
  Transmission Date: 20120608
  Serious: Yes (Hospitalization)
  Sender: FDA-Public Use
  Company Number: 2012HGS-003185

PATIENT
  Age: 59 Year
  Sex: Female
  Weight: 108.8633 kg

DRUGS (24)
  1. BENLYSTA [Suspect]
     Indication: SYSTEMIC LUPUS ERYTHEMATOSUS
     Dosage: 1 IN 28 D, INTRAVENOUS DRIP
     Route: 041
     Dates: start: 20120113
  2. PERDNISONE (PREDNISONE) [Concomitant]
  3. OXYCODONE WITH APAP (OXYCOCET) [Concomitant]
  4. PLAQUENIL [Concomitant]
  5. ARAVA [Concomitant]
  6. AMLODIPINE [Concomitant]
  7. LEVOTHYROXINE SODIUM [Concomitant]
  8. SIMVASTATIN [Concomitant]
  9. HYOSCYAMINE (HYOSCYAMINE) [Concomitant]
  10. MULTIVITAMIN (VIGRAN) (ERGOCALCIFEROL, ASCORBIC ACID, PYRIDOXINE HYDRO [Concomitant]
  11. LIDOCAINE MOUTHWSH (LIDOCAINE) [Concomitant]
  12. NITROSTAT [Concomitant]
  13. MIRALAX [Concomitant]
  14. METHADONE HCL [Concomitant]
  15. SAVELLA [Concomitant]
  16. TRICOR [Concomitant]
  17. FLUTICASONE PROPIONATE [Concomitant]
  18. PANTOPRAZOLE [Concomitant]
  19. CALCIUM WITH VITAMIN D (LEKOVIT CA) (COLECALCIFEROL, CALCIUM CARBONATE [Concomitant]
  20. OMEPRAZOLE [Concomitant]
  21. FROVA [Concomitant]
  22. GABAPENTIN [Concomitant]
  23. ZOFRAN [Concomitant]
  24. FOLIC ACID [Concomitant]

REACTIONS (3)
  - BLOOD PRESSURE INCREASED [None]
  - CHEST PAIN [None]
  - INFUSION RELATED REACTION [None]
